FAERS Safety Report 9114262 (Version 1)
Quarter: 2013Q1

REPORT INFORMATION
  Report Type: Spontaneous
  Country: US (occurrence: US)
  Receive Date: 20130208
  Receipt Date: 20130208
  Transmission Date: 20140127
  Serious: Yes (Other)
  Sender: FDA-Public Use
  Company Number: CHPA2013US002042

PATIENT
  Age: 70 Year
  Sex: Male

DRUGS (2)
  1. MAALOX ADV MAXIMUM STRENGTH ANTACID/ANTIGAS [Suspect]
     Indication: GASTRIC PH DECREASED
     Dosage: A COUPLE OF TBSP, UNK
     Route: 048
     Dates: start: 1993
  2. MAALOX ADV MAXIMUM STRENGTH ANTACID/ANTIGAS [Suspect]
     Dosage: A COUPLE OF TBSP, UNK
     Route: 048
     Dates: start: 1993

REACTIONS (4)
  - Diabetes mellitus [Not Recovered/Not Resolved]
  - Malaise [Recovered/Resolved]
  - Off label use [Unknown]
  - Incorrect dose administered [Unknown]
